FAERS Safety Report 24573843 (Version 2)
Quarter: 2024Q4

REPORT INFORMATION
  Report Type: Report from Study
  Country: CA (occurrence: CA)
  Receive Date: 20241103
  Receipt Date: 20241106
  Transmission Date: 20250115
  Serious: Yes (Other)
  Sender: JOHNSON AND JOHNSON
  Company Number: CA-JNJFOC-20240768262

PATIENT
  Age: 45 Year
  Sex: Female

DRUGS (9)
  1. STELARA [Suspect]
     Active Substance: USTEKINUMAB
     Indication: Crohn^s disease
     Route: 058
     Dates: start: 20200911
  2. STELARA [Suspect]
     Active Substance: USTEKINUMAB
     Route: 040
  3. STELARA [Suspect]
     Active Substance: USTEKINUMAB
     Route: 058
     Dates: start: 20200916
  4. STELARA [Suspect]
     Active Substance: USTEKINUMAB
     Route: 040
  5. PINAVERIUM BROMIDE [Concomitant]
     Active Substance: PINAVERIUM BROMIDE
  6. PANTOPRAZOLE SODIUM [Concomitant]
     Active Substance: PANTOPRAZOLE SODIUM
  7. SPIRONOLACTONE [Concomitant]
     Active Substance: SPIRONOLACTONE
  8. NORTRIPTYLINE HYDROCHLORIDE [Concomitant]
     Active Substance: NORTRIPTYLINE HYDROCHLORIDE
  9. PERINDOPRIL [Concomitant]
     Active Substance: PERINDOPRIL

REACTIONS (6)
  - Infusion related reaction [Recovered/Resolved]
  - Clostridium difficile infection [Recovering/Resolving]
  - Anaphylactic reaction [Unknown]
  - Crohn^s disease [Unknown]
  - Arthralgia [Unknown]
  - Therapeutic response decreased [Unknown]

NARRATIVE: CASE EVENT DATE: 20240911
